FAERS Safety Report 11392760 (Version 1)
Quarter: 2015Q3

REPORT INFORMATION
  Report Type: Spontaneous
  Country: US (occurrence: US)
  Receive Date: 20150818
  Receipt Date: 20150818
  Transmission Date: 20151125
  Serious: No
  Sender: FDA-Public Use
  Company Number: US-TEVA-587373ACC

PATIENT
  Sex: Female
  Weight: 89.44 kg

DRUGS (2)
  1. PARAGARD T 380A [Suspect]
     Active Substance: COPPER
     Indication: CONTRACEPTION
     Route: 015
     Dates: start: 20150529, end: 20150619
  2. PRO-CAL [Concomitant]
     Indication: MINERAL SUPPLEMENTATION

REACTIONS (1)
  - Device expulsion [Recovered/Resolved]
